FAERS Safety Report 12282265 (Version 9)
Quarter: 2017Q1

REPORT INFORMATION
  Report Type: Report from Study
  Country: None (occurrence: BE)
  Receive Date: 20160419
  Receipt Date: 20170201
  Transmission Date: 20170428
  Serious: Yes (Hospitalization)
  Sender: FDA-Public Use
  Company Number: BE-ABBVIE-16P-013-1606209-00

PATIENT
  Sex: Female

DRUGS (5)
  1. DUODOPA [Suspect]
     Active Substance: CARBIDOPA\LEVODOPA
     Indication: PARKINSON^S DISEASE
     Dosage: AM= 4ML; CD= 2.2 ML/H DURING 16 HRS; ED= 1 ML
     Route: 050
     Dates: start: 20100531, end: 20100601
  2. DUODOPA [Suspect]
     Active Substance: CARBIDOPA\LEVODOPA
     Dosage: AM=2.5 ML; CD=2.6 ML/H DURING 16 HRS;ED=2 ML, ND=1.5 ML/H DURING 8 HRS
     Route: 050
     Dates: start: 201606, end: 20161219
  3. DUODOPA [Suspect]
     Active Substance: CARBIDOPA\LEVODOPA
     Dosage: AM= 2 ML; CD= 2.6 ML/H DURING 16 HRS; ND= 2.6 ML/H DURING 8 HRS; ED= 2 ML
     Route: 050
     Dates: start: 20161219
  4. DUODOPA [Suspect]
     Active Substance: CARBIDOPA\LEVODOPA
     Dosage: DOSES CONTINUOUSLY MONITORED AND ADAPTED
     Route: 050
     Dates: start: 20100601, end: 20150622
  5. DUODOPA [Suspect]
     Active Substance: CARBIDOPA\LEVODOPA
     Dosage: AM= 2.5ML; CD= 3.2 ML/H DRUING 16 HRS; ND= 1.5 ML/H DURING 8 HRS; ED= 2ML
     Route: 050
     Dates: start: 20150622, end: 201606

REACTIONS (14)
  - Emotional disorder [Not Recovered/Not Resolved]
  - Dyskinesia [Not Recovered/Not Resolved]
  - Extra dose administered [Not Recovered/Not Resolved]
  - Disinhibition [Unknown]
  - Freezing phenomenon [Recovering/Resolving]
  - Stoma site hypergranulation [Not Recovered/Not Resolved]
  - Mental disorder [Not Recovered/Not Resolved]
  - Social avoidant behaviour [Unknown]
  - Malaise [Recovering/Resolving]
  - Aggression [Unknown]
  - Depression [Unknown]
  - Stress [Recovering/Resolving]
  - Agitation [Unknown]
  - Libido increased [Unknown]
